FAERS Safety Report 14750970 (Version 1)
Quarter: 2018Q2

REPORT INFORMATION
  Report Type: Spontaneous
  Country: ES (occurrence: ES)
  Receive Date: 20180412
  Receipt Date: 20180412
  Transmission Date: 20180711
  Serious: Yes (Other)
  Sender: FDA-Public Use
  Company Number: ES-BAUSCH-BL-2018-009431

PATIENT
  Age: 23 Year
  Sex: Male

DRUGS (19)
  1. VINCRISTINE SULFATE. [Suspect]
     Active Substance: VINCRISTINE SULFATE
     Dosage: SECOND CYCLE (1) ; CYCLICAL
     Route: 065
     Dates: start: 2014
  2. METHOTREXATE SODIUM. [Suspect]
     Active Substance: METHOTREXATE SODIUM
     Indication: ACUTE LYMPHOCYTIC LEUKAEMIA RECURRENT
     Dosage: REGIMEN #1, FIRST CYCLE
     Route: 065
     Dates: start: 20140415
  3. RITUXIMAB. [Suspect]
     Active Substance: RITUXIMAB
     Indication: PRODUCT USED FOR UNKNOWN INDICATION
     Dosage: REGIMEN 1, FIRST CYCLE, CYCLICAL
     Route: 065
  4. PONATINIB [Suspect]
     Active Substance: PONATINIB
     Indication: ACUTE LYMPHOCYTIC LEUKAEMIA RECURRENT
     Dosage: REGIMEN 1, FIRST CYCLE
     Route: 065
     Dates: start: 20140415
  5. THIOTEPA. [Suspect]
     Active Substance: THIOTEPA
     Indication: ACUTE LYMPHOCYTIC LEUKAEMIA RECURRENT
     Dosage: REGIMEN 1, CYCLICAL
     Route: 065
     Dates: start: 20140928
  6. DOXORUBICIN HCL [Suspect]
     Active Substance: DOXORUBICIN HYDROCHLORIDE
     Indication: ACUTE LYMPHOCYTIC LEUKAEMIA RECURRENT
     Dosage: REGIMEN #1, FIRST CYCLE
     Route: 065
     Dates: start: 20140415
  7. DOXORUBICIN HCL [Suspect]
     Active Substance: DOXORUBICIN HYDROCHLORIDE
     Dosage: SECOND CYCLE
     Route: 065
     Dates: start: 2014
  8. BUSULFAN. [Suspect]
     Active Substance: BUSULFAN
     Indication: ACUTE LYMPHOCYTIC LEUKAEMIA RECURRENT
     Dosage: REGIMEN 1, CYCLICAL
     Route: 065
     Dates: start: 20140928
  9. CYTARABINE. [Suspect]
     Active Substance: CYTARABINE
     Indication: ACUTE LYMPHOCYTIC LEUKAEMIA RECURRENT
     Dosage: REGIMEN 1, FIRST CYCLE,  CYCLICAL
     Route: 065
     Dates: start: 20140415
  10. METHOTREXATE SODIUM. [Suspect]
     Active Substance: METHOTREXATE SODIUM
     Dosage: SECOND CYCLE
     Route: 065
     Dates: start: 2014
  11. CYTARABINE. [Suspect]
     Active Substance: CYTARABINE
     Dosage: SECOND CYCLE, CYCLICAL
     Route: 065
     Dates: start: 2014
  12. VINCRISTINE SULFATE. [Suspect]
     Active Substance: VINCRISTINE SULFATE
     Indication: ACUTE LYMPHOCYTIC LEUKAEMIA RECURRENT
     Dosage: REGIMEN 1, FIRST CYCLE, CYCLICAL
     Route: 065
     Dates: start: 20140415
  13. GENOXAL [Suspect]
     Active Substance: CYCLOPHOSPHAMIDE
     Indication: ACUTE LYMPHOCYTIC LEUKAEMIA RECURRENT
     Dosage: REGIMEN 1, FIRST CYCLE, CYCLICAL
     Route: 065
     Dates: start: 20140415
  14. DEXAMETHASONE. [Suspect]
     Active Substance: DEXAMETHASONE
     Indication: ACUTE LYMPHOCYTIC LEUKAEMIA RECURRENT
     Dosage: REGIMEN 1, FIRST CYCLE
     Route: 065
     Dates: start: 20140415
  15. PONATINIB [Suspect]
     Active Substance: PONATINIB
     Dosage: AFTER HEMATOPOIETIC STEM CELL TRANSPLANTATION
     Route: 065
     Dates: start: 2014
  16. FLUDARABINE [Suspect]
     Active Substance: FLUDARABINE PHOSPHATE
     Indication: ACUTE LYMPHOCYTIC LEUKAEMIA RECURRENT
     Dosage: REGIMEN 1, (1) ; CYCLICAL
     Route: 065
     Dates: start: 20140928
  17. DEXAMETHASONE. [Suspect]
     Active Substance: DEXAMETHASONE
     Dosage: SECOND CYCLE
     Route: 065
     Dates: start: 2014
  18. PONATINIB [Suspect]
     Active Substance: PONATINIB
     Dosage: SECOND CYCLE
     Route: 065
     Dates: start: 2014
  19. GENOXAL [Suspect]
     Active Substance: CYCLOPHOSPHAMIDE
     Dosage: SECOND CYCLE, CYCLICAL
     Route: 065
     Dates: start: 2014

REACTIONS (1)
  - Neoplasm recurrence [Unknown]

NARRATIVE: CASE EVENT DATE: 20141124
